FAERS Safety Report 17458537 (Version 5)
Quarter: 2020Q2

REPORT INFORMATION
  Report Type: Spontaneous
  Country: US (occurrence: US)
  Receive Date: 20200225
  Receipt Date: 20200428
  Transmission Date: 20200713
  Serious: Yes (Hospitalization, Other)
  Sender: FDA-Public Use
  Company Number: US-SA-2020SA043196

PATIENT
  Age: 51 Year
  Sex: Female

DRUGS (2)
  1. CABLIVI [Suspect]
     Active Substance: CAPLACIZUMAB-YHDP
     Dosage: 11 MG, QD
     Route: 058
     Dates: start: 20200229, end: 20200328
  2. CABLIVI [Suspect]
     Active Substance: CAPLACIZUMAB-YHDP
     Indication: THROMBOTIC MICROANGIOPATHY
     Dosage: 11 MG, QD
     Route: 058
     Dates: start: 20200214

REACTIONS (11)
  - Staphylococcal infection [Unknown]
  - Platelet count decreased [Unknown]
  - Vital functions abnormal [Unknown]
  - Heart rate increased [Unknown]
  - Epistaxis [Unknown]
  - Septic shock [Recovering/Resolving]
  - Chills [Unknown]
  - Swelling [Unknown]
  - Contusion [Unknown]
  - Pyrexia [Unknown]
  - Skin irritation [Unknown]
